FAERS Safety Report 10100517 (Version 7)
Quarter: 2015Q4

REPORT INFORMATION
  Report Type: Spontaneous
  Country: US (occurrence: US)
  Receive Date: 20140423
  Receipt Date: 20151008
  Transmission Date: 20160304
  Serious: Yes (Hospitalization, Other)
  Sender: FDA-Public Use
  Company Number: US-GLAXOSMITHKLINE-A1069642A

PATIENT
  Age: 62 Year
  Sex: Female
  Weight: 95.24 kg

DRUGS (12)
  1. CARVEDILOL. [Suspect]
     Active Substance: CARVEDILOL
     Indication: HYPERTENSION
     Dosage: 40 MG, QD
     Route: 048
     Dates: start: 200511, end: 200601
  2. INSULIN [Concomitant]
     Active Substance: INSULIN NOS
  3. LISINOPRIL. [Concomitant]
     Active Substance: LISINOPRIL
  4. CARVEDILOL. [Suspect]
     Active Substance: CARVEDILOL
     Indication: ARRHYTHMIA
  5. CARVEDILOL PHOSPHATE. [Suspect]
     Active Substance: CARVEDILOL PHOSPHATE
     Indication: HYPERTENSION
     Dosage: UNK
     Dates: start: 201503
  6. COREG [Suspect]
     Active Substance: CARVEDILOL
     Indication: HYPERTENSION
     Dosage: UNKNOWN DAILY DOSING. ONCE DAILY.
     Route: 048
     Dates: start: 2005, end: 2005
  7. JANUVIA [Concomitant]
     Active Substance: SITAGLIPTIN PHOSPHATE
  8. COREG [Suspect]
     Active Substance: CARVEDILOL
     Indication: ARRHYTHMIA
  9. COREG CR [Suspect]
     Active Substance: CARVEDILOL PHOSPHATE
     Indication: HYPERTENSION
     Dosage: UNKNOWN DOSING.40 MG80 MG
     Route: 048
     Dates: start: 2005
  10. COREG CR [Suspect]
     Active Substance: CARVEDILOL PHOSPHATE
     Indication: ARRHYTHMIA
     Dosage: 40 MG, U
     Dates: start: 200601
  11. COREG CR [Suspect]
     Active Substance: CARVEDILOL PHOSPHATE
     Indication: STENT PLACEMENT
  12. PLAVIX [Concomitant]
     Active Substance: CLOPIDOGREL BISULFATE

REACTIONS (17)
  - Gastric cancer [Unknown]
  - Drug ineffective [Recovered/Resolved]
  - Renal cancer [Unknown]
  - Seroma [Unknown]
  - Hypotension [Unknown]
  - Blood pressure fluctuation [Not Recovered/Not Resolved]
  - Malignant neoplasm of eye [Unknown]
  - Lung neoplasm malignant [Unknown]
  - Product substitution issue [Not Recovered/Not Resolved]
  - Colon operation [Unknown]
  - Inability to afford medication [Unknown]
  - Neoplasm malignant [Unknown]
  - Coronary arterial stent insertion [Unknown]
  - Intestinal operation [Unknown]
  - Surgery [Unknown]
  - Weight decreased [Unknown]
  - Drug intolerance [Unknown]

NARRATIVE: CASE EVENT DATE: 20051102
